FAERS Safety Report 15250923 (Version 1)
Quarter: 2018Q3

REPORT INFORMATION
  Report Type: Spontaneous
  Country: US (occurrence: US)
  Receive Date: 20180807
  Receipt Date: 20180807
  Transmission Date: 20181010
  Serious: No
  Sender: FDA-Public Use
  Company Number: US-PERRIGO-18US001978

PATIENT
  Age: 72 Year
  Sex: Female
  Weight: 108.84 kg

DRUGS (1)
  1. MOTRIN IB [Suspect]
     Active Substance: IBUPROFEN
     Indication: PAIN
     Dosage: 200 MG, BID
     Route: 048
     Dates: start: 201610, end: 20180211

REACTIONS (3)
  - Cystitis [Recovered/Resolved]
  - Blood urine present [Not Recovered/Not Resolved]
  - Incorrect drug administration duration [Recovered/Resolved]

NARRATIVE: CASE EVENT DATE: 201610
